FAERS Safety Report 19063908 (Version 1)
Quarter: 2021Q1

REPORT INFORMATION
  Report Type: Report from Study
  Country: US (occurrence: US)
  Receive Date: 20210326
  Receipt Date: 20210326
  Transmission Date: 20210420
  Serious: Yes (Death)
  Sender: FDA-Public Use
  Company Number: US-AMERICAN REGENT INC-2021000738

PATIENT
  Sex: Female

DRUGS (108)
  1. MIRCERA [Suspect]
     Active Substance: METHOXY POLYETHYLENE GLYCOL-EPOETIN BETA
     Indication: PRODUCT USED FOR UNKNOWN INDICATION
     Dosage: 75 MCG
     Route: 065
     Dates: start: 20200928, end: 20200928
  2. CARVEDILOL. [Concomitant]
     Active Substance: CARVEDILOL
     Dosage: 180 TABLET (2 IN 1 D)
     Route: 048
     Dates: start: 20171215
  3. EZETIMIBE. [Concomitant]
     Active Substance: EZETIMIBE
     Dosage: 1 DOSAGE FORMS, 1 IN 1 D
     Route: 048
     Dates: start: 20190225
  4. GABAPENTIN. [Concomitant]
     Active Substance: GABAPENTIN
     Indication: PRODUCT USED FOR UNKNOWN INDICATION
     Dosage: 60 CAPSULE (2 DOSAGE FORMS, 1 IN 1 D)
     Route: 048
     Dates: start: 20201105, end: 20201105
  5. LEVOTHYROXINE. [Concomitant]
     Active Substance: LEVOTHYROXINE
     Dosage: 1 IN 1 D
     Route: 048
     Dates: start: 20190507
  6. LIDOCAINE AND PRILOCAINE [Concomitant]
     Active Substance: LIDOCAINE\PRILOCAINE
     Dosage: APPLY SMALL AMOUNT TO ACCESS SITE (AVF) 1 TO 2 HOURS BEFORE DIALYSIS, COVER WITH OCCLUSIVE DRESSING
     Route: 065
     Dates: start: 20200626
  7. LISINOPRIL. [Concomitant]
     Active Substance: LISINOPRIL
     Indication: PRODUCT USED FOR UNKNOWN INDICATION
     Dosage: UNK
     Route: 065
     Dates: start: 20200430, end: 20201010
  8. RENVELA [Concomitant]
     Active Substance: SEVELAMER CARBONATE
     Dosage: WITH MEALS (2 IN 1 D)
     Route: 048
     Dates: start: 20190506
  9. INSULIN [Concomitant]
     Active Substance: INSULIN NOS
     Indication: PRODUCT USED FOR UNKNOWN INDICATION
     Dosage: UNK
     Route: 065
     Dates: start: 20200408, end: 20201210
  10. AVAPRO [Concomitant]
     Active Substance: IRBESARTAN
     Indication: PRODUCT USED FOR UNKNOWN INDICATION
     Dosage: 1 IN 1 D
     Route: 048
     Dates: start: 20200302, end: 20201120
  11. HYDRALAZINE [Concomitant]
     Active Substance: HYDRALAZINE HYDROCHLORIDE
     Dosage: 3 IN 1 D
     Route: 048
     Dates: start: 20140814
  12. SIMVASTATIN. [Concomitant]
     Active Substance: SIMVASTATIN
     Dosage: 1 IN 1 D
     Route: 048
  13. METHOCARBAMOL. [Concomitant]
     Active Substance: METHOCARBAMOL
     Indication: PRODUCT USED FOR UNKNOWN INDICATION
     Dosage: 4 IN 1 D
     Route: 048
     Dates: start: 20170805
  14. VENOFER [Suspect]
     Active Substance: IRON SUCROSE
     Dosage: 200 MG
     Route: 042
     Dates: start: 20201028, end: 20201028
  15. ALBUTEROL SULFATE. [Concomitant]
     Active Substance: ALBUTEROL SULFATE
     Indication: PRODUCT USED FOR UNKNOWN INDICATION
     Dosage: 60 VIAL (AS NEEDED)
  16. EZETIMIBE. [Concomitant]
     Active Substance: EZETIMIBE
     Indication: PRODUCT USED FOR UNKNOWN INDICATION
     Dosage: 1 DOSAGE FORMS, 1 IN 1 D
     Route: 048
     Dates: start: 20201201, end: 20201201
  17. EZETIMIBE. [Concomitant]
     Active Substance: EZETIMIBE
     Dosage: 1 DOSAGE FORMS, 1 IN 1 D
     Route: 048
     Dates: start: 20200429, end: 20210107
  18. LEVOTHYROXINE. [Concomitant]
     Active Substance: LEVOTHYROXINE
     Dosage: UNK
     Route: 065
     Dates: start: 20200603, end: 20210107
  19. LIDOCAINE AND PRILOCAINE [Concomitant]
     Active Substance: LIDOCAINE\PRILOCAINE
     Dosage: APPLY SMALL AMOUNT TO ACCESS SITE (AVF) 1 TO 2 HOURS BEFORE DIALYSIS, COVER WITH OCCLUSIVE DRESSING
     Route: 065
     Dates: start: 20191017, end: 20210107
  20. METOPROLOL SUCCINATE. [Concomitant]
     Active Substance: METOPROLOL SUCCINATE
     Indication: PRODUCT USED FOR UNKNOWN INDICATION
     Dosage: 1 IN 1 D
     Route: 048
     Dates: start: 20190328
  21. METOPROLOL SUCCINATE. [Concomitant]
     Active Substance: METOPROLOL SUCCINATE
     Dosage: 2 IN 1 D
     Route: 048
  22. MIDODRINE [Concomitant]
     Active Substance: MIDODRINE
     Indication: PRODUCT USED FOR UNKNOWN INDICATION
     Dosage: 1 DOSAGE FORMS, 3 IN 1 WK
     Route: 048
     Dates: start: 20200930, end: 20210107
  23. PANTOPRAZOLE [Concomitant]
     Active Substance: PANTOPRAZOLE
     Indication: PRODUCT USED FOR UNKNOWN INDICATION
     Dosage: 1 IN 1 D
     Route: 048
     Dates: start: 20200515, end: 20210107
  24. PANTOPRAZOLE [Concomitant]
     Active Substance: PANTOPRAZOLE
     Dosage: 1 IN 1 D
     Route: 048
     Dates: start: 20180917
  25. VITAMINS NOS [Concomitant]
     Active Substance: VITAMINS
     Indication: PRODUCT USED FOR UNKNOWN INDICATION
     Dosage: 90 TABLET (1 IN 1 D)
     Route: 048
  26. RANOLAZINE. [Concomitant]
     Active Substance: RANOLAZINE
     Dosage: 2 IN 1 D
     Route: 048
  27. TRADJENTA [Concomitant]
     Active Substance: LINAGLIPTIN
     Indication: PRODUCT USED FOR UNKNOWN INDICATION
     Dosage: BEFORE MEALS (1 IN 1 D)
     Route: 048
     Dates: start: 20200123, end: 20201120
  28. METHYLPREDNISOLONE. [Concomitant]
     Active Substance: METHYLPREDNISOLONE
     Indication: PRODUCT USED FOR UNKNOWN INDICATION
     Dosage: UNK
     Route: 065
     Dates: start: 20200717, end: 20201120
  29. ACETAMINOPHEN. [Concomitant]
     Active Substance: ACETAMINOPHEN
     Indication: PAIN
     Dosage: 1 IN 4 HR
     Route: 054
     Dates: end: 20201120
  30. SENSIPAR [Concomitant]
     Active Substance: CINACALCET HYDROCHLORIDE
     Indication: PRODUCT USED FOR UNKNOWN INDICATION
     Dosage: 2 IN 1 WK
     Route: 048
     Dates: start: 20180905
  31. FAMOTIDINE. [Concomitant]
     Active Substance: FAMOTIDINE
     Indication: DYSPEPSIA
     Dosage: 60 TABLET (1 DOSAGE FORMS, 2 IN 1 D)
     Route: 048
  32. LIDOCAINE AND PRILOCAINE [Concomitant]
     Active Substance: LIDOCAINE\PRILOCAINE
     Indication: PRODUCT USED FOR UNKNOWN INDICATION
     Dosage: APPLY SMALL AMOUNT TO ACCESS SITE (AVF) 1 TO 2 HOURS BEFORE DIALYSIS, COVER WITH OCCLUSIVE DRESSING
     Route: 065
     Dates: start: 20200929, end: 20201212
  33. METOCLOPRAMIDE. [Concomitant]
     Active Substance: METOCLOPRAMIDE
     Indication: PRODUCT USED FOR UNKNOWN INDICATION
     Dosage: 60 TABLET, TAKE 30 MINUTES BEFORE MEAL (1 DOSAGE FORMS, 2 IN 1 D)
     Route: 048
     Dates: start: 20200623, end: 20201028
  34. METOCLOPRAMIDE. [Concomitant]
     Active Substance: METOCLOPRAMIDE
     Dosage: 2 IN 1 D
     Route: 048
     Dates: start: 20190220
  35. NITROGLYCERIN. [Concomitant]
     Active Substance: NITROGLYCERIN
     Indication: PRODUCT USED FOR UNKNOWN INDICATION
     Dosage: 1 IN 1 D
     Route: 065
     Dates: start: 20201105, end: 20201105
  36. RANOLAZINE. [Concomitant]
     Active Substance: RANOLAZINE
     Dosage: 60 TABLET (2 IN 1 D)
     Route: 048
     Dates: start: 20201112, end: 20201112
  37. RANOLAZINE. [Concomitant]
     Active Substance: RANOLAZINE
     Dosage: 2 IN 1 D
     Route: 048
     Dates: start: 20200528, end: 20210107
  38. TRESIBA [Concomitant]
     Active Substance: INSULIN DEGLUDEC
     Indication: PRODUCT USED FOR UNKNOWN INDICATION
     Dosage: UNK
     Route: 065
     Dates: start: 20190621
  39. TRESIBA [Concomitant]
     Active Substance: INSULIN DEGLUDEC
     Dosage: UNK
     Route: 065
     Dates: start: 20190426
  40. BRILINTA [Concomitant]
     Active Substance: TICAGRELOR
     Indication: PRODUCT USED FOR UNKNOWN INDICATION
     Dosage: 1 IN 1 D
     Route: 048
     Dates: start: 20200505, end: 20201120
  41. HYDRALAZINE [Concomitant]
     Active Substance: HYDRALAZINE HYDROCHLORIDE
     Indication: PRODUCT USED FOR UNKNOWN INDICATION
     Dosage: 1 DOSAGE FORM, QD
     Route: 048
  42. SIMVASTATIN. [Concomitant]
     Active Substance: SIMVASTATIN
     Indication: PRODUCT USED FOR UNKNOWN INDICATION
     Dosage: 1 IN 1 D
     Route: 048
     Dates: start: 20190222
  43. OFLOXACIN. [Concomitant]
     Active Substance: OFLOXACIN
     Indication: PRODUCT USED FOR UNKNOWN INDICATION
     Dosage: 4 IN 1 D
     Route: 047
     Dates: start: 20190129
  44. VALSARTAN. [Concomitant]
     Active Substance: VALSARTAN
     Indication: PRODUCT USED FOR UNKNOWN INDICATION
     Dosage: 1 IN 1 D
     Route: 048
  45. CRESTOR [Concomitant]
     Active Substance: ROSUVASTATIN CALCIUM
     Indication: PRODUCT USED FOR UNKNOWN INDICATION
     Dosage: 1 IN 1 D
     Route: 048
     Dates: start: 20150806
  46. VITAMIN D2 [Concomitant]
     Active Substance: ERGOCALCIFEROL
     Indication: PRODUCT USED FOR UNKNOWN INDICATION
     Dosage: 1 DOSAGE FORMS, 1 IN 1 WK
     Route: 048
     Dates: start: 20150415
  47. EZETIMIBE. [Concomitant]
     Active Substance: EZETIMIBE
     Dosage: 1 DOSAGE FORMS, 1 IN 1 D
     Route: 048
     Dates: start: 20190404
  48. LEVOTHYROXINE. [Concomitant]
     Active Substance: LEVOTHYROXINE
     Dosage: UNK
     Route: 065
     Dates: start: 20200603, end: 20210107
  49. PANTOPRAZOLE [Concomitant]
     Active Substance: PANTOPRAZOLE
     Dosage: 1 IN 1 D
     Route: 048
     Dates: start: 20190619
  50. VALSARTAN. [Concomitant]
     Active Substance: VALSARTAN
     Dosage: 1 IN 1 D
     Route: 048
  51. ASPIRIN. [Concomitant]
     Active Substance: ASPIRIN
     Indication: PRODUCT USED FOR UNKNOWN INDICATION
     Dosage: 90 TABLETS (1 DOSAGE FORM, QD)
     Route: 048
     Dates: start: 20150514
  52. GABAPENTIN. [Concomitant]
     Active Substance: GABAPENTIN
     Dosage: 180 CAPSULE (1 IN 1 D)
     Route: 048
     Dates: start: 20200429, end: 20210107
  53. LANTUS [Concomitant]
     Active Substance: INSULIN GLARGINE
     Indication: PRODUCT USED FOR UNKNOWN INDICATION
     Dosage: UNK
     Route: 065
     Dates: start: 20200630, end: 20201022
  54. LISINOPRIL. [Concomitant]
     Active Substance: LISINOPRIL
     Dosage: UNK
     Route: 065
     Dates: start: 20200430, end: 20201119
  55. TRADJENTA [Concomitant]
     Active Substance: LINAGLIPTIN
     Dosage: BEFORE MEALS (1 IN 1 D)
     Route: 048
     Dates: start: 20190621
  56. OXYCODONE AND ACETAMINOPHEN [Concomitant]
     Active Substance: ACETAMINOPHEN\OXYCODONE HYDROCHLORIDE
     Dosage: 5?325 MG
     Route: 065
     Dates: start: 20190504
  57. OMEGA?3?ACID ETHYL ESTER [Concomitant]
     Active Substance: OMEGA-3-ACID ETHYL ESTERS
     Indication: PRODUCT USED FOR UNKNOWN INDICATION
     Dosage: UNK
     Route: 065
     Dates: start: 20200630, end: 20201120
  58. OMEGA?3?ACID ETHYL ESTER [Concomitant]
     Active Substance: OMEGA-3-ACID ETHYL ESTERS
     Dosage: UNK
     Route: 065
     Dates: start: 20200420
  59. PREDNISOLONE ACETATE. [Concomitant]
     Active Substance: PREDNISOLONE ACETATE
     Indication: PRODUCT USED FOR UNKNOWN INDICATION
     Dosage: 4 IN 1 D
     Route: 047
     Dates: start: 20190129
  60. PREDNISONE. [Concomitant]
     Active Substance: PREDNISONE
     Indication: PRODUCT USED FOR UNKNOWN INDICATION
     Dosage: 1 IN 1 D
     Route: 048
     Dates: start: 20170805
  61. METOPROLOL TARTRATE. [Concomitant]
     Active Substance: METOPROLOL TARTRATE
     Indication: PRODUCT USED FOR UNKNOWN INDICATION
     Dosage: 1 DOSAGE FORMS, 2 IN 1 D
     Route: 048
  62. MECLIZINE [Concomitant]
     Active Substance: MECLIZINE HYDROCHLORIDE
     Indication: DIZZINESS
     Dosage: 3 IN 1 D
     Route: 048
  63. CRESTOR [Concomitant]
     Active Substance: ROSUVASTATIN CALCIUM
     Dosage: AT BEDTIME (1 IN 1 D)
     Route: 048
     Dates: start: 20140308
  64. NOVOLOG [Concomitant]
     Active Substance: INSULIN ASPART
     Indication: PRODUCT USED FOR UNKNOWN INDICATION
     Dosage: 70 IU (35 IU, 2 IN 1 D)
     Route: 058
     Dates: start: 20140913
  65. VENOFER [Suspect]
     Active Substance: IRON SUCROSE
     Dosage: 200 MG
     Route: 042
     Dates: start: 20201030, end: 20201030
  66. ATORVASTATIN [Concomitant]
     Active Substance: ATORVASTATIN
     Indication: PRODUCT USED FOR UNKNOWN INDICATION
     Dosage: 90 TABLET (1 DOASAGE FORMS, 1 TABLET EVERY NIGHT)
     Route: 048
     Dates: start: 20200302
  67. LANTUS [Concomitant]
     Active Substance: INSULIN GLARGINE
     Dosage: UNK
     Route: 065
     Dates: start: 20200120, end: 20210107
  68. LEVOTHYROXINE. [Concomitant]
     Active Substance: LEVOTHYROXINE
     Dosage: UNK
     Route: 065
     Dates: start: 20200603
  69. PANTOPRAZOLE [Concomitant]
     Active Substance: PANTOPRAZOLE
     Dosage: 1 IN 1 D
     Route: 048
     Dates: start: 20200515, end: 20201010
  70. RANOLAZINE. [Concomitant]
     Active Substance: RANOLAZINE
     Dosage: 2 IN 1 D
     Route: 048
     Dates: start: 20200528
  71. TRESIBA [Concomitant]
     Active Substance: INSULIN DEGLUDEC
     Dosage: 12 IU
     Route: 058
     Dates: start: 20181207
  72. OXYCODONE AND ACETAMINOPHEN [Concomitant]
     Active Substance: ACETAMINOPHEN\OXYCODONE HYDROCHLORIDE
     Indication: PRODUCT USED FOR UNKNOWN INDICATION
     Dosage: 5?325 MG
     Route: 065
     Dates: start: 20200611, end: 20201120
  73. HYDRALAZINE [Concomitant]
     Active Substance: HYDRALAZINE HYDROCHLORIDE
     Dosage: 3 IN 1 D
     Route: 048
     Dates: start: 20180521
  74. NIFEDIPINE. [Concomitant]
     Active Substance: NIFEDIPINE
     Indication: PRODUCT USED FOR UNKNOWN INDICATION
     Dosage: 2 IN 1 D
     Route: 048
     Dates: start: 20181116
  75. CLONIDINE HYDROCHLORIDE. [Concomitant]
     Active Substance: CLONIDINE HYDROCHLORIDE
     Indication: BLOOD PRESSURE ABNORMAL
     Dosage: 2 IN 1 D
     Route: 048
     Dates: start: 20190219
  76. METOPROLOL TARTRATE. [Concomitant]
     Active Substance: METOPROLOL TARTRATE
     Dosage: 1 DOSAGE FORMS, 1 IN 1 D
     Route: 048
     Dates: start: 20140211
  77. VENOFER [Suspect]
     Active Substance: IRON SUCROSE
     Indication: PRODUCT USED FOR UNKNOWN INDICATION
     Dosage: 200 MG
     Route: 042
     Dates: start: 20201026, end: 20201026
  78. CARVEDILOL. [Concomitant]
     Active Substance: CARVEDILOL
     Indication: PRODUCT USED FOR UNKNOWN INDICATION
     Dosage: 180 TABLET (1 DOASGE FORMS, 2 IN 1D)
     Route: 048
  79. GABAPENTIN. [Concomitant]
     Active Substance: GABAPENTIN
     Dosage: AT BEDTIME (2 IN 1 D)
     Route: 048
     Dates: start: 20190621
  80. LEVOTHYROXINE. [Concomitant]
     Active Substance: LEVOTHYROXINE
     Indication: PRODUCT USED FOR UNKNOWN INDICATION
     Dosage: UNK
     Route: 065
     Dates: start: 20200603, end: 20201022
  81. LISINOPRIL. [Concomitant]
     Active Substance: LISINOPRIL
     Dosage: UNK
     Route: 065
     Dates: start: 20200430, end: 20201119
  82. RENVELA [Concomitant]
     Active Substance: SEVELAMER CARBONATE
     Dosage: WITH MEALS (2 IN 1 D)
     Route: 048
     Dates: start: 20200408, end: 20210107
  83. AZITHROMYCIN ANHYDROUS. [Concomitant]
     Active Substance: AZITHROMYCIN ANHYDROUS
     Indication: PRODUCT USED FOR UNKNOWN INDICATION
     Dosage: UNK
     Route: 065
     Dates: start: 20200717, end: 20201120
  84. HUMALOG [Concomitant]
     Active Substance: INSULIN LISPRO
     Indication: PRODUCT USED FOR UNKNOWN INDICATION
     Dosage: WITH MEALS
     Route: 058
     Dates: start: 20171215
  85. ZOFRAN [Concomitant]
     Active Substance: ONDANSETRON HYDROCHLORIDE
     Indication: PRODUCT USED FOR UNKNOWN INDICATION
     Dosage: 1 IN 1 D
     Route: 048
     Dates: start: 20160901
  86. VANCOMYCIN HYDROCHLORIDE. [Concomitant]
     Active Substance: VANCOMYCIN HYDROCHLORIDE
     Indication: PRODUCT USED FOR UNKNOWN INDICATION
     Dosage: 500 MG, DURING DIALYSIS EVERY TREATMENT X 2 TIME
     Route: 042
     Dates: start: 20200710
  87. MIRCERA [Suspect]
     Active Substance: METHOXY POLYETHYLENE GLYCOL-EPOETIN BETA
     Dosage: 200 MCG
     Route: 065
     Dates: start: 20201012, end: 20201012
  88. MIRCERA [Suspect]
     Active Substance: METHOXY POLYETHYLENE GLYCOL-EPOETIN BETA
     Dosage: 100 MCG
     Route: 065
     Dates: start: 20201026, end: 20201026
  89. CINACALCET. [Concomitant]
     Active Substance: CINACALCET
     Indication: PRODUCT USED FOR UNKNOWN INDICATION
     Dosage: 90 TABLET (1 DOSAGE FORMS, 1 IN 1 D)
     Route: 048
  90. CLOPIDOGREL [Concomitant]
     Active Substance: CLOPIDOGREL BISULFATE
     Indication: PRODUCT USED FOR UNKNOWN INDICATION
     Dosage: 1 DOSAGE FORMS, 1 IN 1 D
     Route: 048
     Dates: start: 20201015, end: 20201015
  91. CLOPIDOGREL [Concomitant]
     Active Substance: CLOPIDOGREL BISULFATE
     Dosage: 1 IN 1 D
     Route: 048
     Dates: start: 20190215
  92. CLOPIDOGREL [Concomitant]
     Active Substance: CLOPIDOGREL BISULFATE
     Dosage: 1 IN 1 D
     Route: 048
  93. CLOPIDOGREL [Concomitant]
     Active Substance: CLOPIDOGREL BISULFATE
     Dosage: 1 IN 1 D
     Route: 048
     Dates: start: 20190215
  94. GABAPENTIN. [Concomitant]
     Active Substance: GABAPENTIN
     Dosage: AT BEDTIME (2 IN 1 D)
     Route: 048
     Dates: start: 20190515
  95. METOCLOPRAMIDE. [Concomitant]
     Active Substance: METOCLOPRAMIDE
     Dosage: 2 IN 1 D
     Route: 048
     Dates: start: 20190612, end: 20210107
  96. MIDODRINE [Concomitant]
     Active Substance: MIDODRINE
     Dosage: 3 IN 1 D
     Route: 048
     Dates: start: 20200130
  97. NITROGLYCERIN. [Concomitant]
     Active Substance: NITROGLYCERIN
     Dosage: 1 IN 1 D
     Route: 065
     Dates: end: 20210107
  98. RANOLAZINE. [Concomitant]
     Active Substance: RANOLAZINE
     Indication: PRODUCT USED FOR UNKNOWN INDICATION
     Dosage: UNK
     Route: 065
     Dates: start: 20200528, end: 20201019
  99. RENVELA [Concomitant]
     Active Substance: SEVELAMER CARBONATE
     Indication: PRODUCT USED FOR UNKNOWN INDICATION
     Dosage: UNK
     Route: 065
     Dates: start: 20200908, end: 20201101
  100. RENVELA [Concomitant]
     Active Substance: SEVELAMER CARBONATE
     Dosage: WITH MEALS (2 IN 1 D)
     Route: 048
     Dates: start: 20200408, end: 20201203
  101. RENVELA [Concomitant]
     Active Substance: SEVELAMER CARBONATE
     Dosage: WITH MEALS (2 IN 1 D)
     Route: 048
     Dates: start: 20200408
  102. RENVELA [Concomitant]
     Active Substance: SEVELAMER CARBONATE
     Dosage: WITH MEALS (3 IN 1 D)
     Route: 048
     Dates: start: 20150519
  103. SYNTHROID [Concomitant]
     Active Substance: LEVOTHYROXINE SODIUM
     Indication: PRODUCT USED FOR UNKNOWN INDICATION
     Dosage: 90 TABLET (1 IN 1 D)
     Route: 048
     Dates: start: 20190621
  104. VITAMIN C [Concomitant]
     Active Substance: ASCORBIC ACID
     Indication: PRODUCT USED FOR UNKNOWN INDICATION
     Dosage: UNK
     Route: 065
     Dates: start: 20200717
  105. METANX [Concomitant]
     Active Substance: LEVOMEFOLATE CALCIUM\METHYLCOBALAMIN\PYRIDOXAL PHOSPHATE ANHYDROUS
     Indication: PRODUCT USED FOR UNKNOWN INDICATION
     Dosage: 2 IN 1 D
     Route: 048
  106. GEMFIBROZIL. [Concomitant]
     Active Substance: GEMFIBROZIL
     Indication: PRODUCT USED FOR UNKNOWN INDICATION
     Dosage: 2 IN 1 D
     Route: 048
     Dates: start: 20190123
  107. SENSIPAR [Concomitant]
     Active Substance: CINACALCET HYDROCHLORIDE
     Dosage: 2 IN 1 WK
     Route: 048
     Dates: start: 20180416
  108. OMEPRAZOLE. [Concomitant]
     Active Substance: OMEPRAZOLE
     Indication: PRODUCT USED FOR UNKNOWN INDICATION
     Dosage: 1 IN 1 D
     Route: 048

REACTIONS (1)
  - Death [Fatal]
